FAERS Safety Report 8194094-8 (Version None)
Quarter: 2012Q1

REPORT INFORMATION
  Report Type: 
  Country: None (occurrence: None)
  Receive Date: 20120308
  Receipt Date: 20120307
  Transmission Date: 20120608
  Serious: Yes (Hospitalization)
  Sender: FDA-Public Use
  Company Number: GB-EISAI INC-E2090-02019-SPO-GB

PATIENT
  Age: 61 Year
  Sex: Male

DRUGS (8)
  1. ZONISAMIDE [Suspect]
     Indication: CLUSTER HEADACHE
     Route: 048
     Dates: start: 20120123, end: 20120201
  2. LITHIUM CARBONATE [Concomitant]
  3. TIOPRONIN [Concomitant]
  4. ZONISAMIDE [Suspect]
     Route: 048
     Dates: start: 20120201
  5. SIMVASTATIN [Concomitant]
  6. ZONISAMIDE [Suspect]
     Route: 048
     Dates: start: 20120201, end: 20120201
  7. OMEPRAZOLE [Concomitant]
  8. ALBUTEROL [Concomitant]

REACTIONS (1)
  - NEUTROPENIC SEPSIS [None]
